FAERS Safety Report 9861821 (Version 1)
Quarter: 2014Q1

REPORT INFORMATION
  Report Type: Spontaneous
  Country: US (occurrence: US)
  Receive Date: 20140203
  Receipt Date: 20140203
  Transmission Date: 20141002
  Serious: Yes (Other)
  Sender: FDA-Public Use
  Company Number: US-ROCHE-1341721

PATIENT
  Age: 7 Year
  Sex: Female
  Weight: 31.78 kg

DRUGS (1)
  1. TAMIFLU [Suspect]
     Indication: INFLUENZA
     Dosage: X5 DAYS, 6 MG/ML.
     Route: 048
     Dates: start: 20140120, end: 20140125

REACTIONS (2)
  - Hallucination, auditory [Not Recovered/Not Resolved]
  - Dizziness [Unknown]
